FAERS Safety Report 15695469 (Version 7)
Quarter: 2019Q2

REPORT INFORMATION
  Report Type: Report from Study
  Country: KR (occurrence: KR)
  Receive Date: 20181206
  Receipt Date: 20190411
  Transmission Date: 20190711
  Serious: Yes (Death)
  Sender: FDA-Public Use
  Company Number: KR-EISAI MEDICAL RESEARCH-EC-2018-048803

PATIENT
  Age: 61 Year
  Sex: Male
  Weight: 54.15 kg

DRUGS (13)
  1. EVEROLIMUS. [Suspect]
     Active Substance: EVEROLIMUS
     Route: 048
     Dates: start: 20181018, end: 20181112
  2. EVEROLIMUS. [Suspect]
     Active Substance: EVEROLIMUS
     Route: 048
     Dates: start: 20180918, end: 20181016
  3. EVEROLIMUS. [Suspect]
     Active Substance: EVEROLIMUS
     Route: 048
     Dates: start: 20180516, end: 20180625
  4. LENVATINIB [Suspect]
     Active Substance: LENVATINIB
     Route: 048
     Dates: start: 20180516, end: 20180625
  5. EVEROLIMUS. [Suspect]
     Active Substance: EVEROLIMUS
     Indication: RENAL CELL CARCINOMA
     Route: 048
     Dates: start: 20180403, end: 20180502
  6. TELMINUVO [Concomitant]
     Active Substance: LEVAMLODIPINE\TELMISARTAN
     Indication: HYPERTENSION
     Dosage: 80/2.5 MG
     Route: 048
     Dates: start: 20180409
  7. LACTICARE HC [Concomitant]
     Indication: RASH
     Route: 062
     Dates: start: 20180918
  8. LENVATINIB [Suspect]
     Active Substance: LENVATINIB
     Indication: RENAL CELL CARCINOMA
     Route: 048
     Dates: start: 20180403, end: 20180502
  9. NOVORAPID [Concomitant]
     Active Substance: INSULIN ASPART
     Indication: DIABETES MELLITUS
     Dosage: 6 UNITS
     Route: 058
     Dates: start: 201707
  10. LENVATINIB [Suspect]
     Active Substance: LENVATINIB
     Route: 048
     Dates: start: 20180710, end: 20181127
  11. EVEROLIMUS. [Suspect]
     Active Substance: EVEROLIMUS
     Route: 048
     Dates: start: 20180710, end: 20180917
  12. LANTUS [Concomitant]
     Active Substance: INSULIN GLARGINE
     Indication: DIABETES MELLITUS
     Dosage: 18 UNITS
     Route: 058
     Dates: start: 20180331
  13. LOPERAMIDE [Concomitant]
     Active Substance: LOPERAMIDE
     Indication: DIARRHOEA
     Route: 048
     Dates: start: 20180626

REACTIONS (1)
  - Sudden death [Fatal]

NARRATIVE: CASE EVENT DATE: 20181128
